FAERS Safety Report 12234560 (Version 2)
Quarter: 2016Q2

REPORT INFORMATION
  Report Type: Spontaneous
  Country: ID (occurrence: ID)
  Receive Date: 20160404
  Receipt Date: 20160622
  Transmission Date: 20160815
  Serious: Yes (Other)
  Sender: FDA-Public Use
  Company Number: ID-ROCHE-1736462

PATIENT
  Sex: Female

DRUGS (3)
  1. ACTEMRA [Suspect]
     Active Substance: TOCILIZUMAB
     Route: 042
     Dates: start: 20160312
  2. METHOTREXATE [Concomitant]
     Active Substance: METHOTREXATE
  3. ACTEMRA [Suspect]
     Active Substance: TOCILIZUMAB
     Indication: RHEUMATOID ARTHRITIS
     Route: 042

REACTIONS (3)
  - Alanine aminotransferase abnormal [Recovered/Resolved]
  - Aspartate aminotransferase abnormal [Recovered/Resolved]
  - Drug ineffective [Unknown]
